FAERS Safety Report 8619045-0 (Version None)
Quarter: 2012Q3

REPORT INFORMATION
  Report Type: 
  Country: None (occurrence: None)
  Receive Date: 20120824
  Receipt Date: 20120816
  Transmission Date: 20120928
  Serious: Yes (Hospitalization)
  Sender: FDA-Public Use
  Company Number: US-BAYER-2012-052594

PATIENT
  Age: 40 Year
  Sex: Female
  Weight: 56.68 kg

DRUGS (7)
  1. YASMIN [Suspect]
     Indication: CONTRACEPTION
     Dosage: UNK
     Dates: start: 20090325, end: 20100106
  2. PROZAC [Concomitant]
     Indication: DEPRESSION
     Dosage: 1 TABLET DAILY
     Dates: start: 20100101
  3. VALTREX [Concomitant]
     Indication: HERPES VIRUS INFECTION
     Dosage: 1 TABLET DAILY
     Dates: start: 20100201
  4. HYDROCODONE BITARTRATE + ACETAMINOPHEN [Concomitant]
     Dosage: 5-500, UNK
     Route: 048
     Dates: start: 20100414
  5. YASMIN [Suspect]
     Dosage: UNK
     Dates: start: 20100325, end: 20100627
  6. AMBIEN [Concomitant]
     Indication: SLEEP DISORDER THERAPY
     Dosage: 1 TABLET DAILY
     Dates: start: 20090101
  7. DROSPIRENONE AND ETHINYL ESTRADIOL [Suspect]
     Indication: CONTRACEPTION
     Dosage: UNK
     Dates: start: 20100106, end: 20100325

REACTIONS (9)
  - PALPITATIONS [None]
  - OEDEMA PERIPHERAL [None]
  - DEEP VEIN THROMBOSIS [None]
  - PULMONARY EMBOLISM [None]
  - INJURY [None]
  - CHEST PAIN [None]
  - PAIN IN EXTREMITY [None]
  - PAIN [None]
  - DYSPNOEA [None]
